FAERS Safety Report 10141073 (Version 3)
Quarter: 2014Q2

REPORT INFORMATION
  Report Type: Spontaneous
  Country: CA (occurrence: CA)
  Receive Date: 20140429
  Receipt Date: 20140530
  Transmission Date: 20141212
  Serious: Yes (Life-Threatening, Other)
  Sender: FDA-Public Use
  Company Number: CA-TAKEDA-2014TUS003316

PATIENT
  Age: 56 Year
  Sex: Female
  Weight: 105 kg

DRUGS (23)
  1. DEXILANT [Suspect]
     Dosage: 60 MG, QD
     Route: 048
     Dates: start: 20130223, end: 20130302
  2. FLUVOXAMINE [Suspect]
     Dosage: 150 MG, BID
     Route: 048
  3. LASIX                              /00032601/ [Suspect]
     Route: 042
  4. LASIX                              /00032601/ [Suspect]
     Dosage: UNK
     Route: 048
  5. ACETAMINOPHEN [Concomitant]
  6. ASA [Concomitant]
     Dosage: 0.5 MG
  7. CICLESONIDE [Concomitant]
     Dosage: UNK
  8. CLINDAMYCIN [Concomitant]
  9. CYANOCOBALAMIN [Concomitant]
  10. DOCUSATE [Concomitant]
  11. FUROSEMIDE [Concomitant]
     Dosage: UNK
     Route: 042
     Dates: start: 20130228
  12. KAYEXALATE [Concomitant]
  13. LEVOTHYROXINE [Concomitant]
  14. PANTOPRAZOLE [Concomitant]
  15. RISPERIDONE [Concomitant]
  16. SENOKOT                            /00142201/ [Concomitant]
  17. RANITIDINE [Concomitant]
     Dosage: UNK
     Dates: start: 20130301
  18. DIPHENHYDRAMINE                    /00000402/ [Concomitant]
     Dosage: UNK
     Dates: start: 20130301
  19. METHYLPREDNISOLONE [Concomitant]
     Dosage: UNK
     Dates: start: 20130301
  20. HYDROXYZINE [Concomitant]
  21. TRIAD [Concomitant]
     Dosage: UNK
     Dates: start: 20130227
  22. CLOTRIMAZOLE [Concomitant]
     Dosage: UNK
     Dates: start: 20140227
  23. DOVONEX [Concomitant]
     Dosage: UNK
     Dates: start: 20130228

REACTIONS (2)
  - Epidermolysis [Not Recovered/Not Resolved]
  - Stevens-Johnson syndrome [Not Recovered/Not Resolved]
